FAERS Safety Report 4691116-3 (Version None)
Quarter: 2005Q2

REPORT INFORMATION
  Report Type: 
  Country: None (occurrence: None)
  Receive Date: 20050610
  Receipt Date: 20050527
  Transmission Date: 20051028
  Serious: Yes (Hospitalization)
  Sender: FDA-Public Use
  Company Number: SUS1-2005-00452

PATIENT
  Age: 57 Year
  Sex: Male

DRUGS (5)
  1. PENTASA [Suspect]
     Indication: COLITIS ULCERATIVE
     Dosage: 750 MG, 3X/DAY; TID, ORAL
     Route: 048
     Dates: start: 19960101, end: 20050513
  2. AMBROXYOL HYDROCHLORIDE (AMBROXOL HYDROCHLORIDE) [Concomitant]
  3. BISOPROLOL FUMARATE [Concomitant]
  4. FAMOTIDINE [Concomitant]
  5. PREDNISOLONE [Concomitant]

REACTIONS (5)
  - CRYPTOGENIC ORGANIZING PNEUMONIA [None]
  - INTERSTITIAL LUNG DISEASE [None]
  - LYMPHOCYTE PERCENTAGE INCREASED [None]
  - NEUTROPHIL PERCENTAGE DECREASED [None]
  - WHITE BLOOD CELL COUNT INCREASED [None]
